FAERS Safety Report 6502976-5 (Version None)
Quarter: 2009Q4

REPORT INFORMATION
  Report Type: 
  Country: None (occurrence: None)
  Receive Date: 20091217
  Receipt Date: 20091215
  Transmission Date: 20100525
  Serious: Yes (Death, Hospitalization)
  Sender: FDA-Public Use
  Company Number: PHEH2009US12525

PATIENT
  Sex: Male

DRUGS (1)
  1. EXJADE [Suspect]
     Indication: ANAEMIA OF CHRONIC DISEASE
     Dosage: 2000 MG, BID
     Route: 048
     Dates: start: 20081204

REACTIONS (2)
  - MALIGNANT NEOPLASM PROGRESSION [None]
  - TERMINAL STATE [None]
